FAERS Safety Report 5247421-5 (Version None)
Quarter: 2007Q1

REPORT INFORMATION
  Report Type: 
  Country: None (occurrence: None)
  Receive Date: 20070220
  Receipt Date: 20070212
  Transmission Date: 20070707
  Serious: Yes (Death, Hospitalization)
  Sender: FDA-Public Use
  Company Number: 430043M06USA

PATIENT
  Age: 70 Year
  Sex: Female
  Weight: 74.3 kg

DRUGS (5)
  1. NOVANTRONE [Suspect]
     Indication: ACUTE MYELOID LEUKAEMIA
     Dates: start: 20060808, end: 20060812
  2. ETOPOSIDE [Suspect]
     Dates: start: 20060808, end: 20060812
  3. CYTARABINE [Suspect]
     Dates: start: 20060808, end: 20060812
  4. ALLOPURINOL [Concomitant]
  5. LASIX [Concomitant]

REACTIONS (5)
  - CAROTID ARTERY ANEURYSM [None]
  - CEREBRAL ARTERY OCCLUSION [None]
  - CEREBRAL HAEMORRHAGE [None]
  - CEREBRAL ISCHAEMIA [None]
  - LACUNAR INFARCTION [None]
